FAERS Safety Report 7702192-5 (Version None)
Quarter: 2011Q3

REPORT INFORMATION
  Report Type: 
  Country: None (occurrence: None)
  Receive Date: 20110822
  Receipt Date: 20110817
  Transmission Date: 20111222
  Serious: Yes (Other)
  Sender: FDA-Public Use
  Company Number: US-ABBOTT-11P-163-0730737-00

PATIENT
  Sex: Female
  Weight: 59.02 kg

DRUGS (12)
  1. HUMIRA [Suspect]
     Dates: start: 20050804, end: 20101201
  2. PREDNISONE [Concomitant]
     Indication: RHEUMATOID ARTHRITIS
  3. FOLIC ACID [Concomitant]
     Indication: VITAMIN SUPPLEMENTATION
  4. ADVIL LIQUI-GELS [Concomitant]
     Indication: PAIN
  5. CLINDAMYCIN [Suspect]
     Indication: TOOTH INFECTION
     Dates: start: 20060101, end: 20060101
  6. CALCIUM CARBONATE [Concomitant]
     Indication: MINERAL SUPPLEMENTATION
  7. ASCORBIC ACID [Concomitant]
     Indication: VITAMIN SUPPLEMENTATION
  8. MULTI-VITAMIN [Concomitant]
     Indication: VITAMIN SUPPLEMENTATION
  9. METHOTREXATE [Concomitant]
     Indication: RHEUMATOID ARTHRITIS
  10. FISH OIL [Concomitant]
     Indication: SUPPLEMENTATION THERAPY
  11. FLAXSEED [Concomitant]
     Indication: MEDICAL DIET
  12. HUMIRA [Suspect]
     Indication: RHEUMATOID ARTHRITIS
     Route: 058
     Dates: start: 20101201

REACTIONS (19)
  - RETINAL VEIN OCCLUSION [None]
  - DYSMENORRHOEA [None]
  - DYSFUNCTIONAL UTERINE BLEEDING [None]
  - SWELLING FACE [None]
  - BLOOD CHOLESTEROL INCREASED [None]
  - ORAL PAIN [None]
  - DIARRHOEA [None]
  - EYE HAEMORRHAGE [None]
  - GLOSSODYNIA [None]
  - TOOTH FRACTURE [None]
  - FUNGAL INFECTION [None]
  - BLOOD TRIGLYCERIDES INCREASED [None]
  - VISUAL IMPAIRMENT [None]
  - HYPERTENSION [None]
  - OVARIAN CYST [None]
  - PAIN IN JAW [None]
  - LOCALISED INFECTION [None]
  - TOOTH INFECTION [None]
  - MENTAL DISORDER [None]
